FAERS Safety Report 21565324 (Version 1)
Quarter: 2022Q4

REPORT INFORMATION
  Report Type: Other
  Country: CO (occurrence: None)
  Receive Date: 20221108
  Receipt Date: 20221108
  Transmission Date: 20230113
  Serious: Yes (Other)
  Sender: FDA-Public Use
  Company Number: CO-ROCHE-3214398

PATIENT
  Age: 62 Year
  Sex: Female
  Weight: 60 kg

DRUGS (6)
  1. TRASTUZUMAB [Suspect]
     Active Substance: TRASTUZUMAB
     Indication: Breast cancer stage IV
     Route: 042
     Dates: start: 20190803
  2. TRASTUZUMAB [Suspect]
     Active Substance: TRASTUZUMAB
     Route: 042
     Dates: start: 20191126, end: 20201105
  3. LAPATINIB [Suspect]
     Active Substance: LAPATINIB
     Indication: Breast cancer stage IV
     Dosage: DOSE AND FREQUENCY WERE UNKNOWN
     Route: 065
     Dates: start: 20190803
  4. ADO-TRASTUZUMAB EMTANSINE [Suspect]
     Active Substance: ADO-TRASTUZUMAB EMTANSINE
     Indication: Breast cancer stage IV
     Route: 065
     Dates: start: 20201214, end: 20210901
  5. PERTUZUMAB [Suspect]
     Active Substance: PERTUZUMAB
     Indication: Breast cancer stage IV
     Route: 065
     Dates: start: 20191126, end: 20201105
  6. DOCETAXEL [Concomitant]
     Active Substance: DOCETAXEL
     Indication: Breast cancer stage IV
     Dosage: DOSE AND FREQUENCY WERE UNKNOWN
     Dates: start: 20191126, end: 20201105

REACTIONS (2)
  - Off label use [Unknown]
  - Neutropenia [Unknown]
